FAERS Safety Report 5233440-1 (Version None)
Quarter: 2007Q1

REPORT INFORMATION
  Report Type: 
  Country: None (occurrence: None)
  Receive Date: 20070206
  Receipt Date: 20070123
  Transmission Date: 20070707
  Serious: Yes (Other)
  Sender: FDA-Public Use
  Company Number: 2006JP004500

PATIENT
  Age: 74 Year
  Sex: Female
  Weight: 46.3 kg

DRUGS (8)
  1. VESICARE [Suspect]
     Indication: URINARY INCONTINENCE
     Dosage: 5 MG, UID/QD, ORAL
     Route: 048
     Dates: start: 20061019, end: 20061027
  2. ACTONEL [Suspect]
     Indication: OSTEOPOROSIS
     Dosage: 1 DF, UID/QD, ORAL
     Route: 048
     Dates: end: 20061027
  3. ZOLPIDEM TARTRATE [Suspect]
     Indication: INSOMNIA
     Dosage: 1 DF, UID/QD, ORAL
     Route: 048
     Dates: end: 20061027
  4. METHYCOBAL (MECOBALAMIN) TABLET [Suspect]
     Indication: NEUROPATHY PERIPHERAL
     Dosage: 1 DF, TID, ORAL
     Route: 048
     Dates: end: 20061027
  5. BUFFERIN [Suspect]
     Indication: PROPHYLAXIS
     Dosage: 1 DF, UID/QD, ORAL
     Route: 048
     Dates: end: 20061027
  6. PROTECADIN (LEFUTIDINE) TABLET [Suspect]
     Indication: GASTRITIS
     Dosage: 1 DF, BID, ORAL
     Route: 048
     Dates: end: 20061027
  7. FLUVASTATIN [Suspect]
     Indication: HYPERLIPIDAEMIA
     Dosage: 1 DF, UID/QD, ORAL
     Route: 048
     Dates: end: 20061027
  8. NORVASC [Suspect]
     Indication: HYPERLIPIDAEMIA
     Dosage: 1 DF, UID/QD, ORAL
     Route: 048
     Dates: end: 20061027

REACTIONS (3)
  - HEPATITIS ACUTE [None]
  - LIVER DISORDER [None]
  - MALAISE [None]
